FAERS Safety Report 12656906 (Version 2)
Quarter: 2016Q3

REPORT INFORMATION
  Report Type: Spontaneous
  Country: IT (occurrence: IT)
  Receive Date: 20160816
  Receipt Date: 20160902
  Transmission Date: 20161109
  Serious: Yes (Life-Threatening, Other)
  Sender: FDA-Public Use
  Company Number: IT-CORDEN PHARMA LATINA S.P.A.-IT-2016COR000201

PATIENT
  Sex: Male

DRUGS (9)
  1. CARBOPLATIN. [Suspect]
     Active Substance: CARBOPLATIN
     Dosage: 50 MG/KG, UNK
     Route: 042
  2. CARBOPLATIN. [Suspect]
     Active Substance: CARBOPLATIN
     Indication: GLIOBLASTOMA MULTIFORME
     Dosage: 25 MG/KG, UNK
     Route: 042
  3. VINCRISTINE [Suspect]
     Active Substance: VINCRISTINE
     Indication: GLIOBLASTOMA MULTIFORME
     Dosage: 0.04 MG/KG, UNK
     Route: 042
  4. CYCLOPHOSPHAMIDE. [Suspect]
     Active Substance: CYCLOPHOSPHAMIDE
     Indication: GLIOBLASTOMA MULTIFORME
     Dosage: 135 MG/KG, UNK
     Route: 042
  5. MELPHALAN [Suspect]
     Active Substance: MELPHALAN
     Indication: GLIOBLASTOMA MULTIFORME
     Dosage: 4 MG/KG/DAY
  6. THIOTEPA. [Suspect]
     Active Substance: THIOTEPA
     Indication: GLIOBLASTOMA MULTIFORME
     Dosage: 10 MG/KG/DAY
  7. METHOTREXATE. [Suspect]
     Active Substance: METHOTREXATE
     Indication: GLIOBLASTOMA MULTIFORME
     Dosage: 250 MG/KG, UNK
  8. ETOPOSIDE. [Suspect]
     Active Substance: ETOPOSIDE
     Indication: GLIOBLASTOMA MULTIFORME
     Dosage: 80 MG/KG, UNK
     Route: 042
  9. ETOPOSIDE. [Suspect]
     Active Substance: ETOPOSIDE
     Dosage: 50 MG/KG, UNK
     Route: 042

REACTIONS (4)
  - Juvenile melanoma benign [Not Recovered/Not Resolved]
  - Thrombocytopenia [Recovered/Resolved]
  - Anaemia [Recovered/Resolved]
  - Transaminases increased [Recovered/Resolved]
